FAERS Safety Report 18278686 (Version 2)
Quarter: 2021Q1

REPORT INFORMATION
  Report Type: Spontaneous
  Country: US (occurrence: US)
  Receive Date: 20200917
  Receipt Date: 20210310
  Transmission Date: 20210419
  Serious: Yes (Hospitalization)
  Sender: FDA-Public Use
  Company Number: US-SHIRE-US202029726

PATIENT
  Sex: Male
  Weight: 70.3 kg

DRUGS (13)
  1. GAMMAGARD LIQUID [Suspect]
     Active Substance: HUMAN IMMUNOGLOBULIN G
     Indication: GIARDIASIS
     Dosage: 25 GRAM, Q4WEEKS
     Route: 042
     Dates: start: 20060530
  2. MELATONIN [Concomitant]
     Active Substance: MELATONIN
     Indication: PRODUCT USED FOR UNKNOWN INDICATION
  3. LIDOCAINE/PRILOCAINE [Concomitant]
     Active Substance: LIDOCAINE\PRILOCAINE
     Indication: PRODUCT USED FOR UNKNOWN INDICATION
  4. DIPHEDRYL [Concomitant]
     Indication: PRODUCT USED FOR UNKNOWN INDICATION
  5. TOBRAMYCIN AND DEXAMETHASONE [Concomitant]
     Active Substance: DEXAMETHASONE\TOBRAMYCIN
     Indication: PRODUCT USED FOR UNKNOWN INDICATION
  6. BENZONATATE. [Concomitant]
     Active Substance: BENZONATATE
     Indication: PRODUCT USED FOR UNKNOWN INDICATION
  7. TROMETHAMINE. [Concomitant]
     Active Substance: TROMETHAMINE
     Indication: PRODUCT USED FOR UNKNOWN INDICATION
  8. GAMMAGARD LIQUID [Suspect]
     Active Substance: HUMAN IMMUNOGLOBULIN G
     Indication: CONGENITAL HYPOGAMMAGLOBULINAEMIA
     Dosage: 25 GRAM, Q3WEEKS
     Route: 042
     Dates: start: 20060530
  9. KETOROLAC [Concomitant]
     Active Substance: KETOROLAC TROMETHAMINE
     Indication: PRODUCT USED FOR UNKNOWN INDICATION
  10. SODIUM CHLORIDE. [Concomitant]
     Active Substance: SODIUM CHLORIDE
     Indication: PRODUCT USED FOR UNKNOWN INDICATION
  11. EPINEPHRINE. [Concomitant]
     Active Substance: EPINEPHRINE
     Indication: PRODUCT USED FOR UNKNOWN INDICATION
  12. DIPHENHYDRAMINE. [Concomitant]
     Active Substance: DIPHENHYDRAMINE
     Indication: PRODUCT USED FOR UNKNOWN INDICATION
  13. ALBUTEROL [SALBUTAMOL] [Concomitant]
     Active Substance: ALBUTEROL
     Indication: PRODUCT USED FOR UNKNOWN INDICATION

REACTIONS (3)
  - Bronchitis [Unknown]
  - Meniscus injury [Unknown]
  - Haemoptysis [Unknown]
